FAERS Safety Report 8251171-0 (Version None)
Quarter: 2012Q1

REPORT INFORMATION
  Report Type: 
  Country: None (occurrence: None)
  Receive Date: 20120321
  Receipt Date: 20100823
  Transmission Date: 20120608
  Serious: No
  Sender: FDA-Public Use
  Company Number: PHHY2010US51158

PATIENT
  Age: 25 Year
  Sex: Female
  Weight: 60.5 kg

DRUGS (2)
  1. ILARIS [Suspect]
     Indication: MUCKLE-WELLS SYNDROME
     Dosage: 150 MG EVERY 7 WEEKS, SUBCUTANEOUS; 150 MG, SUBCUTANEOUS
     Route: 058
     Dates: start: 20080422
  2. ILARIS [Suspect]
     Indication: MUCKLE-WELLS SYNDROME
     Dosage: 150 MG EVERY 7 WEEKS, SUBCUTANEOUS; 150 MG, SUBCUTANEOUS
     Route: 058
     Dates: start: 20070921

REACTIONS (3)
  - NAUSEA [None]
  - VERTIGO [None]
  - DIZZINESS [None]
